FAERS Safety Report 5075620-4 (Version None)
Quarter: 2006Q3

REPORT INFORMATION
  Report Type: 
  Country: None (occurrence: None)
  Receive Date: 20060807
  Receipt Date: 20060725
  Transmission Date: 20061208
  Serious: Yes (Other)
  Sender: FDA-Public Use
  Company Number: S06-USA-00723-01

PATIENT
  Age: 44 Year
  Sex: Male

DRUGS (7)
  1. LEXAPRO [Suspect]
     Indication: MAJOR DEPRESSION
     Dosage: 15 MG QD PO
     Route: 048
     Dates: end: 20060411
  2. LEXAPRO [Suspect]
     Indication: MAJOR DEPRESSION
     Dosage: 10 MG QD PO
     Route: 048
     Dates: start: 20051004
  3. WELLBUTRIN [Suspect]
     Indication: MAJOR DEPRESSION
     Dosage: 150 MG QD PO
     Route: 048
     Dates: start: 19991020, end: 20040118
  4. WELLBUTRIN [Suspect]
     Indication: MAJOR DEPRESSION
     Dosage: 300 MG QD PO
     Route: 048
     Dates: start: 20040119, end: 20060109
  5. WELLBUTRIN [Suspect]
     Indication: MAJOR DEPRESSION
     Dosage: 450 MG QD PO
     Route: 048
     Dates: start: 20060110, end: 20060101
  6. THYROID TAB [Suspect]
     Indication: HYPOTHYROIDISM
     Dosage: 60 MG QD PO
     Route: 048
  7. RISPERDAL [Concomitant]

REACTIONS (6)
  - BIFASCICULAR BLOCK [None]
  - BLOOD PRESSURE INCREASED [None]
  - ELECTROCARDIOGRAM QRS COMPLEX PROLONGED [None]
  - ELECTROCARDIOGRAM QT CORRECTED INTERVAL PROLONGED [None]
  - ELECTROCARDIOGRAM QT PROLONGED [None]
  - QRS AXIS ABNORMAL [None]
